FAERS Safety Report 19007244 (Version 1)
Quarter: 2021Q1

REPORT INFORMATION
  Report Type: Report from Study
  Country: FR (occurrence: FR)
  Receive Date: 20210315
  Receipt Date: 20210315
  Transmission Date: 20210420
  Serious: Yes (Hospitalization)
  Sender: FDA-Public Use
  Company Number: FR-TAIHO ONCOLOGY  INC-IM-2020-00887

PATIENT
  Age: 62 Year
  Sex: Male
  Weight: 85 kg

DRUGS (7)
  1. PARACETAMOL [Concomitant]
     Active Substance: ACETAMINOPHEN
     Indication: PAIN
     Dosage: 1 G, PRN
     Route: 048
     Dates: start: 2020
  2. LONSURF [Suspect]
     Active Substance: TIPIRACIL HYDROCHLORIDE\TRIFLURIDINE
     Indication: COLORECTAL CANCER METASTATIC
     Dosage: 120 MG, DAILY
     Route: 048
     Dates: start: 20200914, end: 20200927
  3. MOVICOL [Concomitant]
     Active Substance: POLYETHYLENE GLYCOL 3350\POTASSIUM CHLORIDE\SODIUM BICARBONATE\SODIUM CHLORIDE
     Indication: CONSTIPATION
     Dosage: 1 DF, QD
     Route: 048
     Dates: start: 2020
  4. LOPERAMIDE HYDROCHLORIDE. [Concomitant]
     Active Substance: LOPERAMIDE HYDROCHLORIDE
     Indication: DIARRHOEA
     Dosage: 1 DF, TID
     Route: 048
     Dates: start: 20200814
  5. ZARZIO [Concomitant]
     Active Substance: FILGRASTIM
     Indication: ANAEMIA
     Dosage: 30 UNK, QD
     Route: 065
     Dates: start: 20200214
  6. NEUROTIN [Concomitant]
     Indication: SCIATICA
     Dosage: 300 MG, TID
     Route: 048
     Dates: start: 2020
  7. ZOPICLONE [Concomitant]
     Active Substance: ZOPICLONE
     Indication: SCIATICA
     Dosage: 75 MG, QD
     Route: 048
     Dates: start: 2020

REACTIONS (2)
  - Anaemia [Recovered/Resolved]
  - Iron deficiency [Recovered/Resolved]

NARRATIVE: CASE EVENT DATE: 20201012
